FAERS Safety Report 6558866-5 (Version None)
Quarter: 2010Q1

REPORT INFORMATION
  Report Type: 
  Country: None (occurrence: None)
  Receive Date: 20100129
  Receipt Date: 20100118
  Transmission Date: 20100710
  Serious: Yes (Other)
  Sender: FDA-Public Use
  Company Number: JP-PFIZER INC-2010007389

PATIENT
  Age: 9 Year
  Sex: Male

DRUGS (3)
  1. GENOTROPIN [Suspect]
     Indication: GROWTH HORMONE DEFICIENCY
     Dosage: UNK
     Route: 058
     Dates: start: 20081209
  2. GENOTROPIN [Suspect]
     Dosage: 3.6 MG/6 TIME A WEEK
     Route: 058
     Dates: start: 20090106
  3. GENOTROPIN [Suspect]
     Dosage: 4.2 MG/6 TIMES A WEEK
     Route: 058
     Dates: start: 20090602

REACTIONS (1)
  - FOOT FRACTURE [None]
